FAERS Safety Report 15758980 (Version 1)
Quarter: 2018Q4

REPORT INFORMATION
  Report Type: Spontaneous
  Country: DE (occurrence: DE)
  Receive Date: 20181225
  Receipt Date: 20181225
  Transmission Date: 20190205
  Serious: Yes (Death, Hospitalization, Other)
  Sender: FDA-Public Use
  Company Number: DE-009507513-1812DEU010178

PATIENT
  Sex: Female
  Weight: 43 kg

DRUGS (1)
  1. PEMBROLIZUMAB. [Suspect]
     Active Substance: PEMBROLIZUMAB
     Indication: LUNG ADENOCARCINOMA
     Dosage: 200 MILLIGRAM
     Route: 042
     Dates: start: 20180803, end: 20181116

REACTIONS (3)
  - Hepatic failure [Fatal]
  - Metastatic bronchial carcinoma [Fatal]
  - Hepatitis fulminant [Unknown]

NARRATIVE: CASE EVENT DATE: 2018
